FAERS Safety Report 13167148 (Version 1)
Quarter: 2017Q1

REPORT INFORMATION
  Report Type: Spontaneous
  Country: US (occurrence: US)
  Receive Date: 20170131
  Receipt Date: 20170131
  Transmission Date: 20170428
  Serious: Yes (Other)
  Sender: FDA-Public Use
  Company Number: US-PFIZER INC-2017037136

PATIENT
  Sex: Female

DRUGS (1)
  1. LYRICA [Suspect]
     Active Substance: PREGABALIN
     Dosage: 50 MG, UNK

REACTIONS (6)
  - Musculoskeletal chest pain [Unknown]
  - Pain in extremity [Unknown]
  - Spinal fracture [Unknown]
  - Dyspnoea [Unknown]
  - Osteoporosis [Unknown]
  - Arthralgia [Unknown]
